FAERS Safety Report 8107260-4 (Version None)
Quarter: 2011Q4

REPORT INFORMATION
  Report Type: 
  Country: None (occurrence: None)
  Receive Date: 20111227
  Receipt Date: 20110901
  Transmission Date: 20120403
  Serious: Yes (Other)
  Sender: FDA-Public Use
  Company Number: PHEH2011US03456

PATIENT
  Age: 29 Year
  Sex: Female
  Weight: 61.7 kg

DRUGS (1)
  1. GILENYA [Suspect]
     Dosage: 0.5 MG, DAILY, ORAL
     Route: 048
     Dates: start: 20110416

REACTIONS (1)
  - HERPES ZOSTER [None]
